FAERS Safety Report 12984762 (Version 1)
Quarter: 2016Q4

REPORT INFORMATION
  Report Type: Spontaneous
  Country: US (occurrence: US)
  Receive Date: 20161129
  Receipt Date: 20161129
  Transmission Date: 20170207
  Serious: Yes (Other)
  Sender: FDA-Public Use
  Company Number: US-ZYDUS-012785

PATIENT
  Age: 36 Year
  Sex: Male

DRUGS (1)
  1. DEXTROAMPHETAMINE. [Suspect]
     Active Substance: DEXTROAMPHETAMINE
     Indication: PRODUCT USED FOR UNKNOWN INDICATION
     Route: 065

REACTIONS (10)
  - Seizure [Unknown]
  - Hyperreflexia [Unknown]
  - Basal ganglia haemorrhage [Unknown]
  - Coma [Unknown]
  - Mydriasis [Unknown]
  - Putamen haemorrhage [Unknown]
  - Clonus [Unknown]
  - Muscle rigidity [Unknown]
  - Hyperhidrosis [Unknown]
  - Drug abuse [Unknown]
